FAERS Safety Report 11297797 (Version 1)
Quarter: 2015Q3

REPORT INFORMATION
  Report Type: Spontaneous
  Country: US (occurrence: US)
  Receive Date: 20150722
  Receipt Date: 20150722
  Transmission Date: 20151125
  Serious: No
  Sender: FDA-Public Use
  Company Number: US-ELI_LILLY_AND_COMPANY-US200912000847

PATIENT
  Age: 10 Year
  Sex: Female

DRUGS (1)
  1. HUMATROPE [Suspect]
     Active Substance: SOMATROPIN
     Indication: BLOOD GROWTH HORMONE ABNORMAL
     Dosage: 2 MG, DAILY (1/D)
     Dates: start: 2002

REACTIONS (2)
  - Intentional product misuse [Not Recovered/Not Resolved]
  - Medication error [Recovered/Resolved]

NARRATIVE: CASE EVENT DATE: 200911
